FAERS Safety Report 17484851 (Version 1)
Quarter: 2020Q1

REPORT INFORMATION
  Report Type: Report from Study
  Country: CA (occurrence: CA)
  Receive Date: 20200302
  Receipt Date: 20200302
  Transmission Date: 20200409
  Serious: Yes (Hospitalization)
  Sender: FDA-Public Use
  Company Number: PHHY2019CA001966

PATIENT
  Age: 56 Year
  Sex: Female

DRUGS (4)
  1. HYDROCORTISONE. [Concomitant]
     Active Substance: HYDROCORTISONE
     Indication: PRODUCT USED FOR UNKNOWN INDICATION
     Dosage: UNK, TID
     Route: 061
     Dates: start: 2016, end: 2018
  2. COSENTYX [Suspect]
     Active Substance: SECUKINUMAB
     Indication: PSORIASIS
     Dosage: 300 MG, QMO (PRE FILLED SYRINGE)
     Route: 058
     Dates: start: 20181114
  3. CYCLOSPORIN [Concomitant]
     Active Substance: CYCLOSPORINE
     Indication: PRODUCT USED FOR UNKNOWN INDICATION
     Dosage: UNK
     Route: 065
  4. COSENTYX [Suspect]
     Active Substance: SECUKINUMAB
     Dosage: 300 MG, QMO
     Route: 058
     Dates: start: 20181205

REACTIONS (7)
  - Rash [Unknown]
  - Skin exfoliation [Unknown]
  - Erythema [Unknown]
  - Skin hypertrophy [Unknown]
  - Skin induration [Unknown]
  - Swelling [Unknown]
  - Breast cancer [Unknown]

NARRATIVE: CASE EVENT DATE: 20200219
